FAERS Safety Report 20643856 (Version 1)
Quarter: 2022Q1

REPORT INFORMATION
  Report Type: Report from Study
  Country: US (occurrence: US)
  Receive Date: 20220328
  Receipt Date: 20220328
  Transmission Date: 20220423
  Serious: Yes (Hospitalization)
  Sender: FDA-Public Use
  Company Number: US-TAKEDA-2022TUS018995

PATIENT
  Sex: Female
  Weight: 72 kg

DRUGS (30)
  1. HUMAN IMMUNOGLOBULIN G [Suspect]
     Active Substance: HUMAN IMMUNOGLOBULIN G
     Indication: Immunodeficiency common variable
     Dosage: 50 GRAM, Q4WEEKS
     Route: 042
     Dates: start: 20180503
  2. ACETAMINOPHEN [Concomitant]
     Active Substance: ACETAMINOPHEN
     Route: 065
  3. DIPHENHYDRAMINE [Concomitant]
     Active Substance: DIPHENHYDRAMINE
     Route: 065
  4. SODIUM CHLORIDE [Concomitant]
     Active Substance: SODIUM CHLORIDE
     Route: 065
  5. EPINEPHRINE [Concomitant]
     Active Substance: EPINEPHRINE
     Route: 065
  6. Lmx [Concomitant]
     Route: 065
  7. PREDNISONE [Concomitant]
     Active Substance: PREDNISONE
     Route: 065
  8. ATORVASTATIN [Concomitant]
     Active Substance: ATORVASTATIN
     Route: 065
  9. MIRALAX [Concomitant]
     Active Substance: POLYETHYLENE GLYCOL 3350
     Route: 065
  10. AMIODARONE HYDROCHLORIDE [Concomitant]
     Active Substance: AMIODARONE HYDROCHLORIDE
     Route: 065
  11. COENZYME Q10 [Concomitant]
     Active Substance: DIETARY SUPPLEMENT\UBIDECARENONE
     Route: 065
  12. ASPIRIN [Concomitant]
     Active Substance: ASPIRIN
     Route: 065
  13. OXYGEN [Concomitant]
     Active Substance: OXYGEN
     Route: 065
  14. LANTUS [Concomitant]
     Active Substance: INSULIN GLARGINE
     Route: 065
  15. TRADJENTA [Concomitant]
     Active Substance: LINAGLIPTIN
     Route: 065
  16. PRIMIDONE [Concomitant]
     Active Substance: PRIMIDONE
     Route: 065
  17. TRAMADOL [Concomitant]
     Active Substance: TRAMADOL
     Route: 065
  18. STOOL SOFTENER (DOCUSATE) [Concomitant]
     Active Substance: DOCUSATE
     Route: 065
  19. FOLIC ACID [Concomitant]
     Active Substance: FOLIC ACID
     Route: 065
  20. VITAMIN B12 [Concomitant]
     Active Substance: CYANOCOBALAMIN
     Route: 065
  21. CURCUMIN [Concomitant]
     Active Substance: CURCUMIN
     Route: 065
  22. VITAMINS [Concomitant]
     Active Substance: VITAMINS
     Route: 065
  23. AMLODIPINE [Concomitant]
     Active Substance: AMLODIPINE BESYLATE
     Route: 065
  24. ALBUTEROL [Concomitant]
     Active Substance: ALBUTEROL
     Route: 065
  25. SACCHAROMYCES CEREVISIAE [Concomitant]
     Active Substance: SACCHAROMYCES CEREVISIAE
     Route: 065
  26. CALCIUM\MAGNESIUM\ZINC [Concomitant]
     Active Substance: CALCIUM\MAGNESIUM\ZINC
     Route: 065
  27. VITAMIN C [Concomitant]
     Active Substance: ASCORBIC ACID
     Route: 065
  28. VITAMIN D2 [Concomitant]
     Active Substance: ERGOCALCIFEROL
     Route: 065
  29. ZETIA [Concomitant]
     Active Substance: EZETIMIBE
     Route: 065
  30. PANTOPRAZOLE [Concomitant]
     Active Substance: PANTOPRAZOLE
     Route: 065

REACTIONS (2)
  - General physical health deterioration [Unknown]
  - Hospice care [Unknown]
